FAERS Safety Report 18955466 (Version 4)
Quarter: 2022Q1

REPORT INFORMATION
  Report Type: Report from Study
  Country: US (occurrence: US)
  Receive Date: 20210301
  Receipt Date: 20220328
  Transmission Date: 20220424
  Serious: Yes (Other)
  Sender: FDA-Public Use
  Company Number: US-SHIRE-US201903680

PATIENT
  Sex: Female

DRUGS (2)
  1. HUMAN IMMUNOGLOBULIN G\HYALURONIDASE RECOMBINANT HUMAN [Suspect]
     Active Substance: HUMAN IMMUNOGLOBULIN G\HYALURONIDASE RECOMBINANT HUMAN
     Indication: Immunodeficiency common variable
     Dosage: 10 GRAM, Q2WEEKS
     Route: 065
  2. HUMAN IMMUNOGLOBULIN G\HYALURONIDASE RECOMBINANT HUMAN [Suspect]
     Active Substance: HUMAN IMMUNOGLOBULIN G\HYALURONIDASE RECOMBINANT HUMAN
     Indication: Primary immunodeficiency syndrome

REACTIONS (7)
  - Sinusitis [Unknown]
  - Urinary tract infection [Unknown]
  - Infection [Unknown]
  - Dizziness [Unknown]
  - Fatigue [Unknown]
  - Condition aggravated [Unknown]
  - Shoulder arthroplasty [Unknown]
